FAERS Safety Report 9232024 (Version 1)
Quarter: 2013Q2

REPORT INFORMATION
  Report Type: Spontaneous
  Country: US (occurrence: US)
  Receive Date: 20130415
  Receipt Date: 20130415
  Transmission Date: 20140414
  Serious: Yes (Hospitalization)
  Sender: FDA-Public Use
  Company Number: US-COVIDIEN/TYCO HEALTHCARE/MALLINCKRODT-T201204642

PATIENT
  Age: 50 Year
  Sex: Female
  Weight: 68.18 kg

DRUGS (5)
  1. FENTANYL CITRATE [Suspect]
  2. MORPHINE EXTENDED-RELEASE [Suspect]
  3. TAPENTADOL [Suspect]
  4. ANTIDEPRESSANTS [Suspect]
  5. SEDATIVE/HYPNOTIC/ANTI-ANXIETY OR ANTIPSYCHOTICS [Suspect]

REACTIONS (1)
  - Suicide attempt [Unknown]
